FAERS Safety Report 5263239-1 (Version None)
Quarter: 2007Q1

REPORT INFORMATION
  Report Type: 
  Country: None (occurrence: None)
  Receive Date: 20061219
  Receipt Date: 20060928
  Transmission Date: 20070707
  Serious: No
  Sender: FDA-Public Use
  Company Number: 2006US002017

PATIENT
  Age: 69 Year
  Sex: Female

DRUGS (7)
  1. VESICARE [Suspect]
     Indication: HYPERTONIC BLADDER
     Dosage: 5 MG, ORAL
     Route: 048
  2. PLAVIX [Concomitant]
  3. AMBIEN [Concomitant]
  4. EFFEXOR [Concomitant]
  5. ESTRACE VAGINAL (ESTRADIOL) [Concomitant]
  6. CLONAZEPAM [Concomitant]
  7. GLUCOPHAGE [Concomitant]

REACTIONS (2)
  - DYSKINESIA [None]
  - TREMOR [None]
